FAERS Safety Report 5993799-4 (Version None)
Quarter: 2008Q4

REPORT INFORMATION
  Report Type: 
  Country: None (occurrence: None)
  Receive Date: 20081212
  Receipt Date: 20081203
  Transmission Date: 20090506
  Serious: Yes (Other)
  Sender: FDA-Public Use
  Company Number: US-AMGEN-QUU321987

PATIENT
  Sex: Female

DRUGS (2)
  1. ENBREL [Suspect]
     Indication: RHEUMATOID ARTHRITIS
     Route: 058
     Dates: start: 20060412
  2. METHOTREXATE [Concomitant]
     Dates: start: 20060130

REACTIONS (5)
  - DEAFNESS [None]
  - LYMPH NODE PAIN [None]
  - NASOPHARYNGITIS [None]
  - NEURALGIA [None]
  - VERTIGO [None]
